FAERS Safety Report 13748690 (Version 2)
Quarter: 2017Q3

REPORT INFORMATION
  Report Type: Report from Study
  Country: SG (occurrence: SG)
  Receive Date: 20170713
  Receipt Date: 20170728
  Transmission Date: 20171127
  Serious: Yes (Other)
  Sender: FDA-Public Use
  Company Number: SG-EMD SERONO-E2B_80075143

PATIENT
  Age: 53 Year
  Sex: Female
  Weight: 65.4 kg

DRUGS (2)
  1. DOXORUBICIN [Suspect]
     Active Substance: DOXORUBICIN
     Indication: OVARIAN CANCER
     Dosage: UNK
     Route: 042
     Dates: start: 20170301, end: 20170525
  2. AVELUMAB [Suspect]
     Active Substance: AVELUMAB
     Indication: OVARIAN CANCER
     Dosage: UNK
     Route: 042
     Dates: start: 20170301, end: 20170609

REACTIONS (1)
  - Vasculitic ulcer [Not Recovered/Not Resolved]

NARRATIVE: CASE EVENT DATE: 20170622
